FAERS Safety Report 9916558 (Version 1)
Quarter: 2014Q1

REPORT INFORMATION
  Report Type: Spontaneous
  Country: DK (occurrence: None)
  Receive Date: 20140219
  Receipt Date: 20140219
  Transmission Date: 20141002
  Serious: Yes (Hospitalization)
  Sender: FDA-Public Use
  Company Number: AUR-APL-2014-01820

PATIENT
  Age: 57 Year
  Sex: Male

DRUGS (7)
  1. SUMATRIPTAN (SUMATRIPTAN) [Suspect]
     Indication: PAIN
  2. BURANA [Suspect]
     Indication: PAIN
  3. PANODIL [Suspect]
     Indication: PAIN
  4. DOLOL [Suspect]
     Indication: PAIN
  5. IMOCLONE [Suspect]
     Indication: PAIN
  6. DICLON (DICLOFENAC SODIUM) [Suspect]
     Indication: PAIN
  7. MANDOLGIN RETARD [Suspect]
     Indication: PAIN

REACTIONS (10)
  - Fall [None]
  - Neck pain [None]
  - Head injury [None]
  - Headache [None]
  - Discomfort [None]
  - Palpitations [None]
  - Supraventricular tachycardia [None]
  - Panic disorder [None]
  - Cardiac disorder [None]
  - Non-cardiac chest pain [None]
